FAERS Safety Report 17441759 (Version 2)
Quarter: 2022Q3

REPORT INFORMATION
  Report Type: Spontaneous
  Country: US (occurrence: US)
  Receive Date: 20200220
  Receipt Date: 20220803
  Transmission Date: 20221027
  Serious: Yes (Hospitalization, Other)
  Sender: FDA-Public Use
  Company Number: US-GILEAD-2020-0451594

PATIENT
  Age: 60 Year
  Sex: Female
  Weight: 57.29 kg

DRUGS (3)
  1. YESCARTA [Suspect]
     Active Substance: AXICABTAGENE CILOLEUCEL
     Indication: Diffuse large B-cell lymphoma recurrent
     Dosage: 2X10^8 CELLS, ONCE
     Route: 042
     Dates: start: 20190501, end: 20190501
  2. FLUDARABINE [Concomitant]
     Active Substance: FLUDARABINE PHOSPHATE
  3. CYCLOPHOSPHAMIDE [Concomitant]
     Active Substance: CYCLOPHOSPHAMIDE

REACTIONS (20)
  - Hypervolaemia [Unknown]
  - Immune effector cell-associated neurotoxicity syndrome [Recovered/Resolved]
  - Respiratory failure [Unknown]
  - Hypertensive emergency [Unknown]
  - Sepsis [Unknown]
  - Deep vein thrombosis [Unknown]
  - Cardiomyopathy [Unknown]
  - Pulmonary oedema [Unknown]
  - Atrial fibrillation [Unknown]
  - Cytokine release syndrome [Recovered/Resolved]
  - Aspiration [Unknown]
  - Atrial fibrillation [Unknown]
  - Blood culture positive [Unknown]
  - Complication associated with device [Unknown]
  - Delirium [Unknown]
  - Ejection fraction decreased [Unknown]
  - Gastric fistula [Unknown]
  - Hypervolaemia [Unknown]
  - Neurotoxicity [Unknown]
  - Streptococcal infection [Unknown]
